FAERS Safety Report 22048788 (Version 1)
Quarter: 2023Q1

REPORT INFORMATION
  Report Type: Spontaneous
  Country: JP (occurrence: None)
  Receive Date: 20230301
  Receipt Date: 20230301
  Transmission Date: 20230418
  Serious: Yes (Death, Hospitalization)
  Sender: FDA-Public Use
  Company Number: 2022A411075

PATIENT

DRUGS (3)
  1. CALQUENCE [Suspect]
     Active Substance: ACALABRUTINIB
     Dosage: DOSE UNKNOWN
     Route: 048
     Dates: end: 20221214
  2. CALQUENCE [Suspect]
     Active Substance: ACALABRUTINIB
     Dosage: NUMBER OF SEPARATE DOSAGES UNKNOWN
     Route: 048
     Dates: start: 20221215, end: 20221220
  3. CALQUENCE [Suspect]
     Active Substance: ACALABRUTINIB
     Dosage: NUMBER OF SEPARATE DOSAGES UNKNOWN
     Route: 048
     Dates: start: 20221221, end: 20230206

REACTIONS (1)
  - COVID-19 [Fatal]

NARRATIVE: CASE EVENT DATE: 20221202
